FAERS Safety Report 25834685 (Version 1)
Quarter: 2025Q3

REPORT INFORMATION
  Report Type: Spontaneous
  Country: CN (occurrence: CN)
  Receive Date: 20250923
  Receipt Date: 20250923
  Transmission Date: 20251020
  Serious: Yes (Other)
  Sender: ROCHE
  Company Number: CN-ROCHE-10000387579

PATIENT
  Age: 44 Year
  Sex: Female

DRUGS (2)
  1. KADCYLA [Suspect]
     Active Substance: ADO-TRASTUZUMAB EMTANSINE
     Indication: Metastases to lymph nodes
     Route: 042
     Dates: start: 20250811, end: 20250811
  2. KADCYLA [Suspect]
     Active Substance: ADO-TRASTUZUMAB EMTANSINE
     Indication: Cancer surgery

REACTIONS (4)
  - Pyrexia [Recovered/Resolved]
  - Bone pain [Recovering/Resolving]
  - Thrombocytopenic purpura [Unknown]
  - Asthenia [Unknown]

NARRATIVE: CASE EVENT DATE: 20250813
